FAERS Safety Report 16592255 (Version 2)
Quarter: 2019Q3

REPORT INFORMATION
  Report Type: Spontaneous
  Country: IT (occurrence: IT)
  Receive Date: 20190718
  Receipt Date: 20190819
  Transmission Date: 20191004
  Serious: Yes (Other)
  Sender: FDA-Public Use
  Company Number: IT-MYLANLABS-2019M1066999

PATIENT
  Age: 2 Year
  Sex: Male

DRUGS (1)
  1. AMIODARONE [Suspect]
     Active Substance: AMIODARONE
     Indication: PRODUCT USED FOR UNKNOWN INDICATION
     Dosage: 200 MILLIGRAM, TOTAL
     Route: 048
     Dates: start: 20181203, end: 20181203

REACTIONS (4)
  - Poisoning [Recovering/Resolving]
  - Headache [Recovering/Resolving]
  - Agitation [Recovering/Resolving]
  - Drug abuse [Recovering/Resolving]

NARRATIVE: CASE EVENT DATE: 20181203
